FAERS Safety Report 8786077 (Version 1)
Quarter: 2012Q4

REPORT INFORMATION
  Report Type: 
  Country: US (occurrence: US)
  Receive Date: 20120914
  Receipt Date: 20120914
  Transmission Date: 20130627
  Serious: No
  Sender: FDA-Public Use
  Company Number: US-VERTEX PHARMACEUTICAL INC.-AE-2012-010944

PATIENT
  Age: 54 Year
  Sex: Male
  Weight: 104.9 kg

DRUGS (7)
  1. INCIVEK [Suspect]
     Indication: HEPATITIS C
     Route: 048
     Dates: start: 20120715
  2. RIBAVIRIN [Concomitant]
     Indication: HEPATITIS C
     Route: 048
     Dates: start: 20120715
  3. PEGASYS [Concomitant]
     Indication: HEPATITIS C
     Route: 058
     Dates: start: 20120715
  4. PROPRANOLOL [Concomitant]
     Indication: HYPERTENSION
     Route: 048
  5. AMLODIPINE [Concomitant]
     Indication: HYPERTENSION
     Route: 048
  6. ENALAPRIL [Concomitant]
     Indication: HYPERTENSION
     Route: 048
  7. DIAZEPAM [Concomitant]
     Indication: ANXIETY
     Route: 048

REACTIONS (11)
  - Depression [Not Recovered/Not Resolved]
  - Migraine [Not Recovered/Not Resolved]
  - Headache [Recovered/Resolved]
  - Hallucination [Recovered/Resolved]
  - Erectile dysfunction [Not Recovered/Not Resolved]
  - Pyrexia [Not Recovered/Not Resolved]
  - Photophobia [Not Recovered/Not Resolved]
  - Chills [Not Recovered/Not Resolved]
  - Decreased appetite [Not Recovered/Not Resolved]
  - Fatigue [Not Recovered/Not Resolved]
  - Nausea [Recovered/Resolved]
